FAERS Safety Report 5897829-X (Version None)
Quarter: 2008Q3

REPORT INFORMATION
  Report Type: 
  Country: None (occurrence: None)
  Receive Date: 20080925
  Receipt Date: 20080904
  Transmission Date: 20090109
  Serious: Yes (Hospitalization)
  Sender: FDA-Public Use
  Company Number: HQWYE893123AUG06

PATIENT
  Sex: Male
  Weight: 63 kg

DRUGS (6)
  1. RAPAMUNE [Suspect]
     Indication: PROPHYLAXIS AGAINST TRANSPLANT REJECTION
     Route: 048
     Dates: start: 20060613, end: 20060801
  2. RAPAMUNE [Suspect]
     Dosage: UNSPECIFIED
     Route: 048
     Dates: start: 20060801, end: 20060901
  3. PREDNISOLONE [Concomitant]
     Indication: PROPHYLAXIS AGAINST TRANSPLANT REJECTION
     Dosage: UNSPECIFIED
     Dates: start: 20060613
  4. PRAZOSIN HCL [Concomitant]
     Indication: HYPERTENSION
     Dosage: 5 MG/TDS
     Dates: start: 20060616
  5. CYCLOSPORINE [Concomitant]
     Indication: PROPHYLAXIS AGAINST TRANSPLANT REJECTION
     Dates: start: 20060613
  6. ATENOLOL [Concomitant]
     Indication: HYPERTENSION
     Dates: start: 20060613

REACTIONS (3)
  - BLOOD CREATININE INCREASED [None]
  - BLOOD UREA INCREASED [None]
  - THROMBOCYTOPENIA [None]
